FAERS Safety Report 18521899 (Version 1)
Quarter: 2020Q4

REPORT INFORMATION
  Report Type: Spontaneous
  Country: US (occurrence: US)
  Receive Date: 20201119
  Receipt Date: 20201119
  Transmission Date: 20210114
  Serious: No
  Sender: FDA-Public Use
  Company Number: None

PATIENT
  Age: 28 Year
  Sex: Female
  Weight: 67.5 kg

DRUGS (3)
  1. FAMOTIDINE. [Concomitant]
     Active Substance: FAMOTIDINE
     Dates: start: 20201118, end: 20201118
  2. FOSAPREPITANT [Suspect]
     Active Substance: FOSAPREPITANT
     Indication: NAUSEA
     Dosage: ?          OTHER FREQUENCY:ONCE;?
     Route: 042
     Dates: start: 20201118, end: 20201118
  3. METHYLPREDNISOLONE. [Concomitant]
     Active Substance: METHYLPREDNISOLONE
     Dates: start: 20201118, end: 20201118

REACTIONS (5)
  - Heart rate increased [None]
  - Dyspnoea [None]
  - Flushing [None]
  - Hypertension [None]
  - Chest discomfort [None]

NARRATIVE: CASE EVENT DATE: 20201118
